FAERS Safety Report 25023768 (Version 3)
Quarter: 2025Q3

REPORT INFORMATION
  Report Type: Spontaneous
  Country: JP (occurrence: JP)
  Receive Date: 20250228
  Receipt Date: 20250912
  Transmission Date: 20251021
  Serious: Yes (Hospitalization)
  Sender: MERCK SHARP & DOHME LLC
  Company Number: JP-009507513-2257624

PATIENT
  Age: 63 Year
  Sex: Male

DRUGS (2)
  1. PEMBROLIZUMAB [Suspect]
     Active Substance: PEMBROLIZUMAB
     Indication: Clear cell renal cell carcinoma
  2. LENVATINIB [Concomitant]
     Active Substance: LENVATINIB

REACTIONS (2)
  - Cytomegalovirus infection [Unknown]
  - Haemophagocytic lymphohistiocytosis [Unknown]
